FAERS Safety Report 5979919-6 (Version None)
Quarter: 2008Q4

REPORT INFORMATION
  Report Type: 
  Country: None (occurrence: None)
  Receive Date: 20081205
  Receipt Date: 20081126
  Transmission Date: 20090506
  Serious: Yes (Other)
  Sender: FDA-Public Use
  Company Number: DE-WYE-H07034608

PATIENT
  Sex: Male

DRUGS (1)
  1. CEFIXIME CHEWABLE [Suspect]
     Indication: INFLUENZA
     Route: 048
     Dates: start: 20081111

REACTIONS (1)
  - TACHYCARDIA [None]
